FAERS Safety Report 9476488 (Version 2)
Quarter: 2013Q4

REPORT INFORMATION
  Report Type: Spontaneous
  Country: FR (occurrence: FR)
  Receive Date: 20130826
  Receipt Date: 20131025
  Transmission Date: 20140711
  Serious: Yes (Life-Threatening, Other)
  Sender: FDA-Public Use
  Company Number: FR-OTSUKA-US-2013-11574

PATIENT
  Age: 35 Year
  Sex: Male

DRUGS (22)
  1. BUSULFEX [Suspect]
     Indication: TRANSPLANT
     Dosage: 0.8 MG/KG, QID
     Route: 042
     Dates: start: 20130720, end: 20130723
  2. ARACYTINE [Suspect]
     Indication: PRODUCT USED FOR UNKNOWN INDICATION
     Dosage: 2000 MG/M2, UNK
     Route: 042
     Dates: start: 20130723, end: 20130723
  3. ARACYTINE [Suspect]
     Dosage: 2000 MG/M2, BID
     Route: 042
     Dates: start: 20130724, end: 20130724
  4. ALKERAN [Suspect]
     Indication: PRODUCT USED FOR UNKNOWN INDICATION
     Dosage: 140 MG/M2, QD
     Route: 042
     Dates: start: 20130725, end: 20130725
  5. GARDENAL [Suspect]
     Indication: PRODUCT USED FOR UNKNOWN INDICATION
     Dosage: 100 UNK, UNK
     Route: 042
     Dates: start: 20130721, end: 20130721
  6. GARDENAL [Suspect]
     Dosage: 40 MG MILLIGRAM(S), QID
     Route: 042
     Dates: start: 20130723, end: 20130723
  7. ZOPHREN [Concomitant]
     Indication: PRODUCT USED FOR UNKNOWN INDICATION
     Dosage: 2 MG MILLIGRAM(S), BID
     Route: 048
  8. ZOPHREN [Concomitant]
     Dosage: 8 MG MILLIGRAM(S), BID
     Route: 048
     Dates: start: 20130720
  9. COLISTIN [Concomitant]
     Indication: ANTIBIOTIC THERAPY
     Dosage: 2 DF DOSAGE FORM, TID
     Route: 048
  10. GENTAMICIN [Concomitant]
     Indication: ANTIBIOTIC THERAPY
     Dosage: 2 DF DOSAGE FORM, TID
     Route: 048
  11. GELOX [Concomitant]
     Indication: PRODUCT USED FOR UNKNOWN INDICATION
     Dosage: 2 DF DOSAGE FORM, QD
  12. EMEND [Concomitant]
     Indication: PRODUCT USED FOR UNKNOWN INDICATION
     Dosage: 125 MG MILLIGRAM(S), UNK
     Dates: start: 20130720, end: 20130720
  13. EMEND [Concomitant]
     Dosage: 80 MG MILLIGRAM(S), QD
  14. MOPRAL [Concomitant]
     Indication: PRODUCT USED FOR UNKNOWN INDICATION
     Dosage: 20 MG MILLIGRAM(S), QD
  15. TOBRADEX [Concomitant]
     Indication: PRODUCT USED FOR UNKNOWN INDICATION
     Dosage: 1 GTT DROP(S) PER EYE, UNK
     Route: 047
  16. IDARAC [Concomitant]
     Indication: PRODUCT USED FOR UNKNOWN INDICATION
     Dosage: 2 DF DOSAGE FORM, PRN, TID
  17. MYCOSTATINE [Concomitant]
     Indication: PRODUCT USED FOR UNKNOWN INDICATION
     Dosage: 2 DF DOSAGE FORM, QD
  18. PENTACARINAT [Concomitant]
     Indication: PRODUCT USED FOR UNKNOWN INDICATION
     Dosage: 1 DF DOSAGE FORM, SINGLE
     Dates: start: 20130721, end: 20130721
  19. HEPARIN [Concomitant]
     Indication: PRODUCT USED FOR UNKNOWN INDICATION
     Dosage: 1 MG/KG, QD
  20. TRIFLUCAN [Concomitant]
     Indication: PRODUCT USED FOR UNKNOWN INDICATION
     Dosage: 200 MG MILLIGRAM(S), QD
  21. PRIMPERAN [Concomitant]
     Indication: PRODUCT USED FOR UNKNOWN INDICATION
     Dosage: 1 DF DOSAGE FORM
  22. ZOVIRAX [Concomitant]
     Indication: PRODUCT USED FOR UNKNOWN INDICATION
     Dosage: 250 MG MILLIGRAM(S), TID

REACTIONS (2)
  - Hepatitis acute [Not Recovered/Not Resolved]
  - Septic shock [Unknown]
